FAERS Safety Report 19169276 (Version 1)
Quarter: 2021Q2

REPORT INFORMATION
  Report Type: Spontaneous
  Country: JP (occurrence: JP)
  Receive Date: 20210422
  Receipt Date: 20210422
  Transmission Date: 20210717
  Serious: Yes (Other)
  Sender: FDA-Public Use
  Company Number: JP-PFIZER INC-2021402088

PATIENT
  Age: 68 Year
  Sex: Female

DRUGS (2)
  1. AMANTADINE HYDROCHLORIDE. [Interacting]
     Active Substance: AMANTADINE HYDROCHLORIDE
     Indication: CEREBRAL INFARCTION
     Dosage: UNK
  2. SPIRONOLACTONE. [Suspect]
     Active Substance: SPIRONOLACTONE
     Indication: PRIMARY HYPERALDOSTERONISM
     Dosage: 25 TO 50 MG, DAILY

REACTIONS (4)
  - Drug interaction [Recovering/Resolving]
  - Glomerular filtration rate decreased [Recovering/Resolving]
  - Toxicity to various agents [Recovering/Resolving]
  - Renal impairment [Recovering/Resolving]
